FAERS Safety Report 9977854 (Version 2)
Quarter: 2014Q1

REPORT INFORMATION
  Report Type: Report from Study
  Country: US (occurrence: US)
  Receive Date: 20140306
  Receipt Date: 20140306
  Transmission Date: 20141002
  Serious: No
  Sender: FDA-Public Use
  Company Number: US-ABBVIE-13P-163-1147442-00

PATIENT
  Age: 21 Year
  Sex: Male
  Weight: 61.29 kg

DRUGS (6)
  1. HUMIRA [Suspect]
     Indication: CROHN^S DISEASE
     Route: 058
     Dates: start: 20130812, end: 20130812
  2. HUMIRA [Suspect]
     Route: 058
     Dates: start: 20130827, end: 20130827
  3. HUMIRA [Suspect]
     Route: 058
     Dates: start: 201309
  4. MERCAPTOPURINE [Concomitant]
     Indication: CROHN^S DISEASE
  5. PRILOSEC [Concomitant]
     Indication: DYSPEPSIA
  6. PREVACID [Concomitant]
     Indication: GASTRIC DISORDER

REACTIONS (13)
  - Lymphadenopathy [Not Recovered/Not Resolved]
  - Inappropriate schedule of drug administration [Unknown]
  - Oropharyngeal pain [Not Recovered/Not Resolved]
  - Rash [Not Recovered/Not Resolved]
  - Dyspnoea [Not Recovered/Not Resolved]
  - Peritonsillar abscess [Not Recovered/Not Resolved]
  - Pharyngitis streptococcal [Recovered/Resolved]
  - Asthenia [Not Recovered/Not Resolved]
  - Fatigue [Not Recovered/Not Resolved]
  - Mass [Not Recovered/Not Resolved]
  - Headache [Not Recovered/Not Resolved]
  - Feeling cold [Not Recovered/Not Resolved]
  - Nausea [Not Recovered/Not Resolved]
